FAERS Safety Report 4721927-7 (Version None)
Quarter: 2005Q3

REPORT INFORMATION
  Report Type: 
  Country: None (occurrence: None)
  Receive Date: 20050720
  Receipt Date: 20050707
  Transmission Date: 20060218
  Serious: Yes (Life-Threatening, Other)
  Sender: FDA-Public Use
  Company Number: GBWYE820108JUL05

PATIENT
  Age: 53 Year

DRUGS (1)
  1. GEMTUZUMAB OZOGAMICIN (GEMTUZUMAB OZOGAMICIN, INJECTION) [Suspect]
     Indication: ACUTE MYELOID LEUKAEMIA
     Dates: start: 20040901

REACTIONS (4)
  - BLOOD PRESSURE DECREASED [None]
  - CAPILLARY LEAK SYNDROME [None]
  - LOWER RESPIRATORY TRACT INFECTION [None]
  - PYREXIA [None]
